FAERS Safety Report 14185583 (Version 1)
Quarter: 2017Q4

REPORT INFORMATION
  Report Type: Spontaneous
  Country: US (occurrence: US)
  Receive Date: 20171114
  Receipt Date: 20171114
  Transmission Date: 20180321
  Serious: No
  Sender: FDA-Public Use
  Company Number: US-MIKART, INC.-2034005

PATIENT
  Age: 37 Year
  Sex: Female
  Weight: 100 kg

DRUGS (1)
  1. CHLORZOXAZONE. [Suspect]
     Active Substance: CHLORZOXAZONE
     Indication: BACK PAIN
     Route: 048
     Dates: start: 20171012, end: 20171013

REACTIONS (1)
  - Headache [Recovering/Resolving]

NARRATIVE: CASE EVENT DATE: 20171012
